FAERS Safety Report 25272074 (Version 2)
Quarter: 2025Q3

REPORT INFORMATION
  Report Type: Spontaneous
  Country: EU (occurrence: EU)
  Receive Date: 20250506
  Receipt Date: 20250810
  Transmission Date: 20251020
  Serious: Yes (Hospitalization)
  Sender: ALEXION PHARMACEUTICALS
  Company Number: None

PATIENT
  Sex: Male
  Weight: 1.84 kg

DRUGS (12)
  1. FASENRA [Suspect]
     Active Substance: BENRALIZUMAB
     Indication: Asthma
     Dosage: 1 DOSAGE FORM, QMONTH
     Dates: start: 20240802, end: 202409
  2. MONTELUKAST [Suspect]
     Active Substance: MONTELUKAST
     Indication: Asthma
     Dosage: 10 MILLIGRAM, QD
     Dates: start: 20240802, end: 20250314
  3. FERROUS FUMARATE [Suspect]
     Active Substance: FERROUS FUMARATE
     Indication: Iron deficiency
     Dosage: 3 DOSAGE FORM, QD
     Dates: start: 20240802, end: 20250314
  4. FOLIC ACID [Suspect]
     Active Substance: FOLIC ACID
     Indication: Vitamin supplementation
     Dosage: 5 MILLIGRAM, QD
     Dates: start: 20240802, end: 20250314
  5. DESLORATADINE [Suspect]
     Active Substance: DESLORATADINE
     Indication: Asthma
     Dosage: 5 MILLIGRAM, QD
     Dates: start: 20240802, end: 20250314
  6. BECLOMETHASONE DIPROPIONATE\FORMOTEROL FUMARATE\GLYCOPYRROLATE [Suspect]
     Active Substance: BECLOMETHASONE DIPROPIONATE\FORMOTEROL FUMARATE\GLYCOPYRROLATE
     Indication: Asthma
     Dosage: 4 DOSAGE FORM, QD
     Dates: start: 20240802, end: 20250314
  7. PREDNISOLONE SODIUM METAZOATE [Suspect]
     Active Substance: PREDNISOLONE SODIUM METAZOATE
     Indication: Asthma
     Dosage: 60 MILLIGRAM, QD
     Dates: start: 20250115, end: 20250120
  8. PREDNISOLONE SODIUM METAZOATE [Suspect]
     Active Substance: PREDNISOLONE SODIUM METAZOATE
     Dosage: 60 MILLIGRAM, QD
     Dates: start: 20250131, end: 20250205
  9. PREDNISOLONE SODIUM METAZOATE [Suspect]
     Active Substance: PREDNISOLONE SODIUM METAZOATE
     Dosage: 60 MILLIGRAM, QD
     Dates: start: 20250210, end: 20250215
  10. PREDNISOLONE SODIUM METAZOATE [Suspect]
     Active Substance: PREDNISOLONE SODIUM METAZOATE
     Dosage: 20 MILLIGRAM, QD
     Dates: start: 20250216, end: 20250303
  11. PREDNISOLONE SODIUM METAZOATE [Suspect]
     Active Substance: PREDNISOLONE SODIUM METAZOATE
     Dosage: 15 MILLIGRAM, QD
     Dates: start: 20250303, end: 20250314
  12. ALBUTEROL [Suspect]
     Active Substance: ALBUTEROL
     Indication: Asthma
     Dates: start: 20240802, end: 20250314

REACTIONS (6)
  - Foetal growth restriction [Recovered/Resolved]
  - Premature baby [Recovered/Resolved]
  - Caput succedaneum [Recovered/Resolved]
  - Jaundice neonatal [Recovered/Resolved]
  - Maternal exposure before pregnancy [Recovered/Resolved]
  - Maternal exposure during pregnancy [Recovered/Resolved]

NARRATIVE: CASE EVENT DATE: 20250314
